FAERS Safety Report 4569950-X (Version None)
Quarter: 2005Q1

REPORT INFORMATION
  Report Type: 
  Country: None (occurrence: None)
  Receive Date: 20050204
  Receipt Date: 20050124
  Transmission Date: 20050727
  Serious: Yes (Other)
  Sender: FDA-Public Use
  Company Number: US-JNJFOC-20041103662

PATIENT
  Sex: Female
  Weight: 68.04 kg

DRUGS (1)
  1. REMICADE [Suspect]
     Indication: ANAL FISTULA
     Route: 042

REACTIONS (3)
  - ANAL FISTULA [None]
  - CONDITION AGGRAVATED [None]
  - INTESTINAL FISTULA [None]
